FAERS Safety Report 16469192 (Version 2)
Quarter: 2019Q2

REPORT INFORMATION
  Report Type: Spontaneous
  Country: US (occurrence: US)
  Receive Date: 20190624
  Receipt Date: 20190627
  Transmission Date: 20190711
  Serious: Yes (Other)
  Sender: FDA-Public Use
  Company Number: US-PFIZER INC-2019265302

PATIENT
  Age: 59 Year
  Sex: Male
  Weight: 78.6 kg

DRUGS (7)
  1. TOBRAMYCIN. [Suspect]
     Active Substance: TOBRAMYCIN
     Indication: STAPHYLOCOCCAL INFECTION
     Dosage: 2.4 G, UNK (A BATCH OF CALCIUM SULFATE STIMULAN BEADS COMPRISED OF 1 G OF VANCOMYCIN AND 2.4 G OF TO
     Route: 051
  2. VANCOMYCIN HCL [Suspect]
     Active Substance: VANCOMYCIN HYDROCHLORIDE
     Dosage: 1.25 G, 2X/DAY (PARENTERAL)EVERY 12 HOURS
     Route: 051
  3. ADALIMUMAB [Concomitant]
     Active Substance: ADALIMUMAB
     Indication: ANKYLOSING SPONDYLITIS
     Dosage: UNK
  4. CALCIUM SULFATE [Suspect]
     Active Substance: CALCIUM SULFATE
     Indication: STAPHYLOCOCCAL INFECTION
     Dosage: UNK (10 CC OF CALCIUM SULFATE POWDER (STIMULAN)
     Route: 051
  5. VANCOMYCIN HCL [Suspect]
     Active Substance: VANCOMYCIN HYDROCHLORIDE
     Dosage: 1 G, UNK (A BATCH OF CALCIUM SULFATE STIMULAN BEADS COMPRISED OF 1 G OF VANCOMYCIN AND 2.4 G OF TOBR
     Route: 051
  6. VANCOMYCIN HCL [Suspect]
     Active Substance: VANCOMYCIN HYDROCHLORIDE
     Indication: STAPHYLOCOCCAL INFECTION
     Dosage: UNK (PARENTERAL)
     Route: 051
  7. VANCOMYCIN HCL [Suspect]
     Active Substance: VANCOMYCIN HYDROCHLORIDE
     Dosage: 1.5 G, 2X/DAY (EVERY 12 HOURS, PARENTERAL)
     Route: 051

REACTIONS (3)
  - Renal tubular necrosis [Recovered/Resolved]
  - Acute kidney injury [Recovered/Resolved]
  - Nephropathy toxic [Recovered/Resolved]
